FAERS Safety Report 17586361 (Version 1)
Quarter: 2020Q1

REPORT INFORMATION
  Report Type: Spontaneous
  Country: US (occurrence: US)
  Receive Date: 20200325
  Receipt Date: 20200325
  Transmission Date: 20200409
  Serious: Yes (Death)
  Sender: FDA-Public Use
  Company Number: None

PATIENT
  Age: 62 Year
  Sex: Female

DRUGS (9)
  1. ATORVASTATIN [Concomitant]
     Active Substance: ATORVASTATIN
  2. OMEPRAZOLE. [Concomitant]
     Active Substance: OMEPRAZOLE
  3. ESBRIET [Suspect]
     Active Substance: PIRFENIDONE
     Indication: IDIOPATHIC PULMONARY FIBROSIS
     Route: 048
     Dates: start: 20191213
  4. GABAPENTIN. [Concomitant]
     Active Substance: GABAPENTIN
  5. IMODIUM AD [Concomitant]
     Active Substance: LOPERAMIDE HYDROCHLORIDE
  6. PREDNISONE. [Concomitant]
     Active Substance: PREDNISONE
  7. ESCITALOPRAM [Concomitant]
     Active Substance: ESCITALOPRAM OXALATE
  8. ASPIRIN. [Concomitant]
     Active Substance: ASPIRIN
  9. METOPROLOL. [Concomitant]
     Active Substance: METOPROLOL

REACTIONS (1)
  - Death [None]
